FAERS Safety Report 10418278 (Version 1)
Quarter: 2014Q3

REPORT INFORMATION
  Report Type: Spontaneous
  Country: US (occurrence: US)
  Receive Date: 20140829
  Receipt Date: 20140829
  Transmission Date: 20150326
  Serious: No
  Sender: FDA-Public Use
  Company Number: US-BAUSCH-BL-2013-005874

PATIENT
  Age: 71 Year
  Sex: Male

DRUGS (4)
  1. DORZOLAMIDE HCL AND TIMOLOL MALEATE [Suspect]
     Active Substance: DORZOLAMIDE HYDROCHLORIDE\TIMOLOL MALEATE
     Indication: GLAUCOMA
     Dosage: 1 DROP IN LEFT EYE, TWO TIMES PER DAY
     Route: 047
     Dates: start: 201309, end: 201309
  2. PREDNISOLONE. [Concomitant]
     Active Substance: PREDNISOLONE
  3. RESTASIS [Concomitant]
     Active Substance: CYCLOSPORINE
  4. DORZOLAMIDE HCL AND TIMOLOL MALEATE [Suspect]
     Active Substance: DORZOLAMIDE HYDROCHLORIDE\TIMOLOL MALEATE
     Dosage: 1 DROP IN RIGHT EYE, TWO TIMES PER DAY
     Route: 047
     Dates: start: 201309, end: 201309

REACTIONS (3)
  - Eye pain [Recovered/Resolved]
  - Visual acuity reduced [Recovered/Resolved]
  - Ocular discomfort [Recovered/Resolved]

NARRATIVE: CASE EVENT DATE: 201309
